FAERS Safety Report 10371457 (Version 2)
Quarter: 2014Q3

REPORT INFORMATION
  Report Type: Spontaneous
  Country: IT (occurrence: None)
  Receive Date: 20140806
  Receipt Date: 20140811
  Transmission Date: 20150326
  Serious: Yes (Other)
  Sender: FDA-Public Use
  Company Number: 2014AP003746

PATIENT
  Age: 59 Year
  Sex: Male

DRUGS (4)
  1. PHENOBARBITAL (PHENOBARBITAL) [Suspect]
     Active Substance: PHENOBARBITAL
     Indication: EPILEPSY
  2. TOPIRAMATE. [Suspect]
     Active Substance: TOPIRAMATE
     Indication: EPILEPSY
  3. SULTIAME [Concomitant]
     Active Substance: SULTHIAME
  4. PHENYTOIN (PHENYTOIN) [Suspect]
     Active Substance: PHENYTOIN
     Indication: EPILEPSY

REACTIONS (4)
  - Hiccups [None]
  - Restless legs syndrome [None]
  - Condition aggravated [None]
  - Cough [None]
